FAERS Safety Report 8655467 (Version 5)
Quarter: 2012Q4

REPORT INFORMATION
  Report Type: 
  Country: US (occurrence: US)
  Receive Date: 20120709
  Receipt Date: 20120830
  Transmission Date: 20130627
  Serious: Yes (Other)
  Sender: FDA-Public Use
  Company Number: US-BAXTER-2012BAX010173

PATIENT
  Age: 2 None
  Sex: Male
  Weight: 20.91 kg

DRUGS (7)
  1. ADVATE [Suspect]
     Indication: HEMOPHILIA A
     Route: 042
     Dates: start: 200910, end: 2012
  2. ADVATE [Suspect]
     Indication: IMMUNE TOLERANCE INDUCTION
     Route: 042
     Dates: start: 201205
  3. ADVATE [Suspect]
     Indication: FACTOR VIII INHIBITION
     Route: 042
     Dates: start: 201006
  4. ADVATE [Suspect]
     Route: 042
     Dates: start: 201109
  5. ADVATE [Suspect]
     Route: 042
     Dates: start: 201206
  6. RECOMBINATE [Suspect]
     Indication: FACTOR VIII INHIBITION
     Route: 042
  7. NOVOSEVEN [Concomitant]
     Indication: BLEEDING
     Route: 042

REACTIONS (3)
  - Device related infection [Recovered/Resolved]
  - Device related infection [Recovered/Resolved]
  - Device related infection [Recovered/Resolved]
